FAERS Safety Report 7010223-3 (Version None)
Quarter: 2010Q3

REPORT INFORMATION
  Report Type: 
  Country: None (occurrence: None)
  Receive Date: 20100923
  Receipt Date: 20100914
  Transmission Date: 20110219
  Serious: Yes (Other)
  Sender: FDA-Public Use
  Company Number: GXKR2010BR10566

PATIENT
  Sex: Female

DRUGS (3)
  1. ALENDRONIC ACID (NGX) [Suspect]
     Route: 048
  2. OMEPRAZOLE [Concomitant]
     Route: 065
  3. ACLASTA [Concomitant]
     Route: 065

REACTIONS (2)
  - ABDOMINAL PAIN UPPER [None]
  - AORTIC ANEURYSM [None]
